FAERS Safety Report 6261865-4 (Version None)
Quarter: 2009Q3

REPORT INFORMATION
  Report Type: 
  Country: None (occurrence: None)
  Receive Date: 20090709
  Receipt Date: 20090701
  Transmission Date: 20100115
  Serious: Yes (Hospitalization)
  Sender: FDA-Public Use
  Company Number: A0795007A

PATIENT
  Sex: Female

DRUGS (6)
  1. CARVEDILOL [Suspect]
     Dosage: 6.25MG TWICE PER DAY
     Route: 048
  2. POTASSIUM CHLORIDE [Concomitant]
  3. GLEEVEC [Concomitant]
  4. LASIX [Concomitant]
  5. SINGULAIR [Concomitant]
  6. VALTREX [Concomitant]

REACTIONS (8)
  - ATRIAL FIBRILLATION [None]
  - BLOOD POTASSIUM DECREASED [None]
  - DIARRHOEA [None]
  - DYSPNOEA [None]
  - ELECTROLYTE IMBALANCE [None]
  - HEART RATE IRREGULAR [None]
  - NAUSEA [None]
  - VOMITING [None]
